FAERS Safety Report 6178637-1 (Version None)
Quarter: 2009Q2

REPORT INFORMATION
  Report Type: 
  Country: None (occurrence: None)
  Receive Date: 20090504
  Receipt Date: 20080924
  Transmission Date: 20091009
  Serious: No
  Sender: FDA-Public Use
  Company Number: US-ALEXION-A200800121

PATIENT

DRUGS (16)
  1. SOLIRIS [Suspect]
     Indication: PAROXYSMAL NOCTURNAL HAEMOGLOBINURIA
     Dosage: 600 MG, SINGLE
     Route: 042
     Dates: start: 20080507, end: 20080507
  2. SOLIRIS [Suspect]
     Dosage: 600 MG, SINGLE
     Route: 042
     Dates: start: 20080514, end: 20080514
  3. SOLIRIS [Suspect]
     Dosage: 600 MG, SINGLE
     Route: 042
     Dates: start: 20080521, end: 20080521
  4. SOLIRIS [Suspect]
     Dosage: 600 MG, SINGLE
     Route: 042
     Dates: start: 20080528, end: 20080528
  5. SOLIRIS [Suspect]
     Dosage: 900 MG, SINGLE
     Route: 042
     Dates: start: 20080603, end: 20080603
  6. SOLIRIS [Suspect]
     Dosage: 900 MG, SINGLE
     Route: 042
     Dates: start: 20080617, end: 20080617
  7. SOLIRIS [Suspect]
     Dosage: 900 MG, SINGLE
     Route: 042
     Dates: start: 20080701, end: 20080701
  8. SOLIRIS [Suspect]
     Dosage: 900 MG, SINGLE
     Route: 042
     Dates: start: 20080715, end: 20080715
  9. SOLIRIS [Suspect]
     Dosage: 900 MG, SINGLE
     Route: 042
     Dates: start: 20080729, end: 20080729
  10. SOLIRIS [Suspect]
     Dosage: 900 MG, SINGLE
     Route: 042
     Dates: start: 20080819, end: 20080819
  11. SOLIRIS [Suspect]
     Dosage: 900 MG, SINGLE
     Route: 042
     Dates: start: 20080923, end: 20080923
  12. FOLIC ACID [Concomitant]
     Dosage: 1 MG, QD
     Route: 048
  13. FERROUS SULFATE TAB [Concomitant]
     Dosage: 1 TAB, QD
     Route: 048
  14. PREDNISONE [Concomitant]
     Dosage: 20 MG, QD
     Dates: start: 20080701
  15. ANDROXYL [Concomitant]
     Dosage: 10 MG, BID
     Dates: start: 20080501
  16. PRILOSEC [Concomitant]
     Dosage: 1 TAB, QD
     Dates: start: 20080701

REACTIONS (17)
  - ARTHRALGIA [None]
  - ASTHENIA [None]
  - BLOOD LACTATE DEHYDROGENASE INCREASED [None]
  - BLOOD TEST ABNORMAL [None]
  - CHROMATURIA [None]
  - DIZZINESS [None]
  - DRUG DOSE OMISSION [None]
  - DYSPNOEA [None]
  - DYSURIA [None]
  - HAEMATURIA [None]
  - INSOMNIA [None]
  - MASS [None]
  - POLLAKIURIA [None]
  - RETICULOCYTE COUNT INCREASED [None]
  - SOMNOLENCE [None]
  - URINARY TRACT INFECTION [None]
  - URINE COLOUR ABNORMAL [None]
